FAERS Safety Report 8588118 (Version 2)
Quarter: 2012Q4

REPORT INFORMATION
  Report Type: 
  Country: US (occurrence: US)
  Receive Date: 20120531
  Receipt Date: 20121203
  Transmission Date: 20130627
  Serious: Yes (Death, Hospitalization)
  Sender: FDA-Public Use
  Company Number: US-BAYER-2012-052060

PATIENT
  Age: 27 Year
  Sex: Female
  Weight: 74.38 kg

DRUGS (5)
  1. YASMIN [Suspect]
     Dosage: UNK
     Dates: start: 20050818, end: 20080814
  2. OCELLA [Suspect]
     Dosage: UNK
     Dates: start: 20090327, end: 20100518
  3. H-APAP [Concomitant]
     Indication: SICKLE CELL DISEASE
     Dosage: UNK
     Dates: start: 2001, end: 20100801
  4. PROMETHAZINE [Concomitant]
     Dosage: UNK
     Dates: start: 20030615, end: 201008
  5. ZOLPIDEM [Concomitant]
     Dosage: UNK
     Dates: start: 20081210, end: 20100709

REACTIONS (8)
  - Death [Fatal]
  - Pulmonary embolism [None]
  - Pain [None]
  - General physical health deterioration [None]
  - Injury [None]
  - Emotional distress [None]
  - Anxiety [None]
  - Chest pain [None]
